FAERS Safety Report 4644592-6 (Version None)
Quarter: 2005Q2

REPORT INFORMATION
  Report Type: 
  Country: None (occurrence: None)
  Receive Date: 20050331
  Receipt Date: 20050208
  Transmission Date: 20051028
  Serious: No
  Sender: FDA-Public Use
  Company Number: 03P-163-0222839-00

PATIENT
  Sex: Female

DRUGS (6)
  1. HUMIRA [Suspect]
     Indication: RHEUMATOID ARTHRITIS
     Dosage: 40 MG, 1 IN 2 WK, SUBCUTANEOUS
     Route: 058
     Dates: start: 20030611
  2. PREDNISONE [Concomitant]
  3. ACETYL SALICYLIC ACID USP BAT [Concomitant]
  4. OXYCOCET [Concomitant]
  5. FENTANYL [Concomitant]
  6. ALENDRONATE SODIUM [Concomitant]

REACTIONS (4)
  - INJECTION SITE ERYTHEMA [None]
  - INJECTION SITE IRRITATION [None]
  - INJECTION SITE PAIN [None]
  - RASH [None]
